FAERS Safety Report 9635012 (Version 1)
Quarter: 2013Q4

REPORT INFORMATION
  Report Type: Spontaneous
  Country: JP (occurrence: None)
  Receive Date: 20131017
  Receipt Date: 20131017
  Transmission Date: 20140711
  Serious: Yes (Hospitalization, Other)
  Sender: FDA-Public Use
  Company Number: CO-OR-JP-2013-144

PATIENT
  Age: 88 Year
  Sex: Female

DRUGS (3)
  1. PREDNISOLONE [Suspect]
     Indication: DEMYELINATING POLYNEUROPATHY
     Route: 048
  2. FLUCONAZOLE [Concomitant]
  3. ITRACONAZOLE [Concomitant]

REACTIONS (1)
  - Liver disorder [None]
